FAERS Safety Report 8050015-X (Version None)
Quarter: 2012Q1

REPORT INFORMATION
  Report Type: 
  Country: None (occurrence: None)
  Receive Date: 20120117
  Receipt Date: 20120116
  Transmission Date: 20120608
  Serious: Yes (Hospitalization, Other)
  Sender: FDA-Public Use
  Company Number: US-BAYER-2012-000403

PATIENT
  Age: 51 Year
  Sex: Male

DRUGS (2)
  1. NEXAVAR [Suspect]
     Indication: HEPATIC NEOPLASM MALIGNANT
     Dosage: 400 MG, BID
     Route: 048
     Dates: start: 20111216, end: 20111223
  2. NEXAVAR [Suspect]
     Dosage: 400 MG, BID
     Route: 048
     Dates: end: 20120109

REACTIONS (8)
  - RASH GENERALISED [None]
  - SKIN EXFOLIATION [None]
  - DEHYDRATION [None]
  - CONFUSIONAL STATE [None]
  - BLISTER [None]
  - PAIN IN EXTREMITY [None]
  - DISEASE PROGRESSION [None]
  - HOSPICE CARE [None]
